FAERS Safety Report 9749681 (Version 3)
Quarter: 2013Q4

REPORT INFORMATION
  Report Type: Spontaneous
  Country: JP (occurrence: JP)
  Receive Date: 20131212
  Receipt Date: 20131227
  Transmission Date: 20140711
  Serious: Yes (Hospitalization, Other)
  Sender: FDA-Public Use
  Company Number: JP-CELGENEUS-087-21660-13121119

PATIENT
  Age: 67 Year
  Sex: Female
  Weight: 48 kg

DRUGS (6)
  1. ABRAXANE [Suspect]
     Indication: BREAST CANCER
     Dosage: 200 MILLIGRAM
     Route: 041
     Dates: start: 20130528, end: 20130730
  2. ALBUMIN [Concomitant]
     Indication: PRODUCT USED FOR UNKNOWN INDICATION
     Route: 065
     Dates: start: 201311
  3. OXYGEN [Concomitant]
     Indication: PRODUCT USED FOR UNKNOWN INDICATION
     Route: 055
     Dates: start: 201311
  4. LASIX [Concomitant]
     Indication: PERICARDIAL EFFUSION
     Dosage: 40 MILLIGRAM
     Route: 065
     Dates: start: 20130828, end: 20131209
  5. ALDACTONE A [Concomitant]
     Indication: PERICARDIAL EFFUSION
     Dosage: 50 MILLIGRAM
     Route: 065
     Dates: start: 20130828, end: 20131209
  6. SAMSCA [Concomitant]
     Indication: PERICARDIAL EFFUSION
     Dosage: 7.5 MILLIGRAM
     Route: 065
     Dates: start: 20130828, end: 20131120

REACTIONS (2)
  - Thrombotic microangiopathy [Not Recovered/Not Resolved]
  - Renal failure acute [Not Recovered/Not Resolved]
